FAERS Safety Report 17687803 (Version 3)
Quarter: 2020Q2

REPORT INFORMATION
  Report Type: Spontaneous
  Country: US (occurrence: US)
  Receive Date: 20200421
  Receipt Date: 20200612
  Transmission Date: 20200714
  Serious: No
  Sender: FDA-Public Use
  Company Number: US-SA-2020SA097340

PATIENT

DRUGS (1)
  1. DUPIXENT [Suspect]
     Active Substance: DUPILUMAB
     Indication: DERMATITIS ATOPIC
     Dosage: 300 MG, QOW
     Route: 058
     Dates: start: 20200407

REACTIONS (6)
  - Pruritus [Recovering/Resolving]
  - Burning sensation [Recovering/Resolving]
  - Skin depigmentation [Unknown]
  - Skin exfoliation [Unknown]
  - Pruritus [Unknown]
  - Alopecia [Unknown]

NARRATIVE: CASE EVENT DATE: 20200407
